FAERS Safety Report 4765704-X (Version None)
Quarter: 2005Q3

REPORT INFORMATION
  Report Type: 
  Country: None (occurrence: None)
  Receive Date: 20050912
  Receipt Date: 20050831
  Transmission Date: 20060218
  Serious: Yes (Disabling)
  Sender: FDA-Public Use
  Company Number: BE-BRISTOL-MYERS SQUIBB COMPANY-13096623

PATIENT
  Age: 36 Year
  Sex: Male

DRUGS (1)
  1. ATAZANAVIR [Suspect]
     Route: 048
     Dates: start: 20030627

REACTIONS (3)
  - HEPATITIS TOXIC [None]
  - JAUNDICE [None]
  - RHABDOMYOLYSIS [None]
